FAERS Safety Report 7094661-9 (Version None)
Quarter: 2010Q4

REPORT INFORMATION
  Report Type: 
  Country: None (occurrence: None)
  Receive Date: 20101110
  Receipt Date: 20101028
  Transmission Date: 20110411
  Serious: Yes (Hospitalization)
  Sender: FDA-Public Use
  Company Number: DE-MYLANLABS-2010S1017674

PATIENT
  Age: 78 Year
  Sex: Male
  Weight: 78 kg

DRUGS (11)
  1. BISOPROLOL [Suspect]
     Indication: HYPERTENSION
     Route: 048
     Dates: start: 20100301, end: 20100626
  2. BISOPROLOL [Interacting]
     Route: 048
     Dates: start: 20100627
  3. MULTAQ [Interacting]
     Indication: ATRIAL FIBRILLATION
     Route: 048
     Dates: start: 20100624, end: 20100627
  4. LORZAAR [Concomitant]
     Indication: HYPERTENSION
     Route: 048
     Dates: start: 20100301
  5. TORSEMIDE [Concomitant]
     Indication: HYPERTENSION
     Dosage: INCREASED TO 10MG 29 JUNE 2010
     Route: 048
     Dates: start: 20100301
  6. RAMIPRIL [Concomitant]
     Indication: HYPERTENSION
     Route: 048
     Dates: start: 20100301
  7. AMLODIPINE [Concomitant]
     Indication: HYPERTENSION
     Route: 048
     Dates: start: 20100301
  8. ACETYLSALICYLIC ACID [Concomitant]
     Indication: ISCHAEMIC HEART DISEASE PROPHYLAXIS
     Route: 048
     Dates: start: 20100301
  9. ISCOVER [Concomitant]
     Indication: ISCHAEMIC HEART DISEASE PROPHYLAXIS
     Route: 048
     Dates: start: 20100301, end: 20100629
  10. SIMVASTATIN [Concomitant]
     Indication: HYPERLIPIDAEMIA
     Route: 048
     Dates: start: 20100301
  11. RANITIC [Concomitant]
     Indication: GASTRITIS EROSIVE
     Route: 048

REACTIONS (2)
  - BRADYCARDIA [None]
  - DRUG INTERACTION [None]
